FAERS Safety Report 14005019 (Version 1)
Quarter: 2017Q3

REPORT INFORMATION
  Report Type: Spontaneous
  Country: GR (occurrence: GR)
  Receive Date: 20170922
  Receipt Date: 20170922
  Transmission Date: 20171128
  Serious: Yes (Other)
  Sender: FDA-Public Use
  Company Number: GR-TEVA-807069ROM

PATIENT
  Age: 19 Year
  Sex: Male

DRUGS (10)
  1. ARIPIPRAZOLE. [Suspect]
     Active Substance: ARIPIPRAZOLE
     Indication: DIGEORGE^S SYNDROME
     Dosage: 80MG/DAY
  2. OLANZAPINE. [Suspect]
     Active Substance: OLANZAPINE
     Indication: DIGEORGE^S SYNDROME
     Dosage: 20 MG/DAY
     Route: 065
  3. CLONAZEPAM. [Suspect]
     Active Substance: CLONAZEPAM
     Indication: DIGEORGE^S SYNDROME
     Dosage: 2 MG/DAY
     Route: 065
  4. BIPERIDEN [Concomitant]
     Active Substance: BIPERIDEN
     Indication: DIGEORGE^S SYNDROME
     Dosage: 6 MG/DAY
     Route: 065
  5. OLANZAPINE. [Suspect]
     Active Substance: OLANZAPINE
     Indication: DIGEORGE^S SYNDROME
     Dosage: 50 MG/DAY THE DOSE WAS FURTHER REDUCED TO 20 MG/DAY
     Route: 065
  6. FLUVOXAMINE [Concomitant]
     Active Substance: FLUVOXAMINE
     Indication: DIGEORGE^S SYNDROME
     Dosage: 100 MG/DAY
     Route: 065
  7. TOPIRAMATE. [Concomitant]
     Active Substance: TOPIRAMATE
     Indication: DIGEORGE^S SYNDROME
     Dosage: 100 MG/DAY
     Route: 065
  8. BIPERIDEN [Concomitant]
     Active Substance: BIPERIDEN
     Indication: DIGEORGE^S SYNDROME
     Dosage: 4 MG/DAY, THE DOSE WAS FURTHER INCREASED TO 6 MG/DAY
     Route: 065
  9. HALOPERIDOL. [Suspect]
     Active Substance: HALOPERIDOL
     Indication: DIGEORGE^S SYNDROME
     Dosage: 60 MG/DAY
     Route: 065
  10. RISPERIDONE. [Suspect]
     Active Substance: RISPERIDONE
     Indication: DIGEORGE^S SYNDROME
     Dosage: 20 MG/DAY
     Route: 065

REACTIONS (3)
  - Amnesia [Recovering/Resolving]
  - Nervous system disorder [Recovering/Resolving]
  - Dizziness [Recovering/Resolving]
